FAERS Safety Report 9552119 (Version 2)
Quarter: 2013Q4

REPORT INFORMATION
  Report Type: Report from Study
  Country: US (occurrence: US)
  Receive Date: 20130925
  Receipt Date: 20131216
  Transmission Date: 20140711
  Serious: Yes (Other)
  Sender: FDA-Public Use
  Company Number: PHEH2013US019890

PATIENT
  Age: 39 Year
  Sex: Female
  Weight: 68.27 kg

DRUGS (1)
  1. GILENYA [Suspect]
     Indication: MULTIPLE SCLEROSIS
     Dosage: 0.5 MG, QD
     Route: 048
     Dates: start: 20130920

REACTIONS (3)
  - Sinus bradycardia [Unknown]
  - Electrocardiogram QT prolonged [Unknown]
  - Blood pressure decreased [Unknown]
